FAERS Safety Report 4777929-8 (Version None)
Quarter: 2005Q3

REPORT INFORMATION
  Report Type: 
  Country: None (occurrence: None)
  Receive Date: 20050921
  Receipt Date: 20050908
  Transmission Date: 20060218
  Serious: Yes (Death, Hospitalization)
  Sender: FDA-Public Use
  Company Number: 216276

PATIENT
  Age: 38 Year
  Sex: Female
  Weight: 49 kg

DRUGS (6)
  1. RITUXIMAB                  (RITUXIMAB) [Suspect]
     Indication: THROMBOTIC THROMBOCYTOPENIC PURPURA
     Dosage: 375 MG/M2, 1/WEEK, INTRAVENOUS
     Route: 042
     Dates: start: 20041012, end: 20041026
  2. KETOPROFEN [Concomitant]
  3. LIPITOR [Concomitant]
  4. PAXIL [Concomitant]
  5. PRECIPITATED CALCIUM CARBONATE (CALCIUM CARBONATE) [Concomitant]
  6. LASIX [Concomitant]

REACTIONS (15)
  - BASE EXCESS NEGATIVE [None]
  - DIALYSIS [None]
  - EOSINOPHIL COUNT DECREASED [None]
  - EOSINOPHIL PERCENTAGE INCREASED [None]
  - HEPATIC ENZYME INCREASED [None]
  - HYPOTENSION [None]
  - INFECTION [None]
  - NEUTROPHIL PERCENTAGE DECREASED [None]
  - NEUTROPHIL PERCENTAGE INCREASED [None]
  - OXYGEN SATURATION DECREASED [None]
  - PCO2 DECREASED [None]
  - PO2 DECREASED [None]
  - PRURITUS [None]
  - RESPIRATORY RATE INCREASED [None]
  - WHITE BLOOD CELL COUNT DECREASED [None]
